FAERS Safety Report 13933201 (Version 1)
Quarter: 2017Q3

REPORT INFORMATION
  Report Type: Spontaneous
  Country: BR (occurrence: BR)
  Receive Date: 20170904
  Receipt Date: 20170904
  Transmission Date: 20171127
  Serious: Yes (Hospitalization)
  Sender: FDA-Public Use
  Company Number: BR-JNJFOC-20170829144

PATIENT
  Sex: Female

DRUGS (1)
  1. CISAPRIDE [Suspect]
     Active Substance: CISAPRIDE
     Indication: GASTRIC DISORDER
     Route: 065

REACTIONS (2)
  - Swelling [Recovering/Resolving]
  - Unevaluable event [Unknown]
